FAERS Safety Report 16366878 (Version 1)
Quarter: 2019Q3

REPORT INFORMATION
  Report Type: Spontaneous
  Country: US (occurrence: US)
  Receive Date: 20190528
  Receipt Date: 20190528
  Transmission Date: 20191004
  Serious: No
  Sender: FDA-Public Use
  Company Number: None

PATIENT
  Age: 50 Year
  Sex: Female
  Weight: 54 kg

DRUGS (2)
  1. REMERON [Concomitant]
     Active Substance: MIRTAZAPINE
  2. ZYPREXA [Suspect]
     Active Substance: OLANZAPINE
     Indication: MAJOR DEPRESSION
     Dosage: ?          QUANTITY:1 TABLET(S);?
     Route: 048
     Dates: start: 20190513, end: 20190527

REACTIONS (12)
  - Swollen tongue [None]
  - Constipation [None]
  - Hypertension [None]
  - Weight increased [None]
  - Thirst [None]
  - Gingival bleeding [None]
  - Swelling face [None]
  - Dizziness [None]
  - Heart rate increased [None]
  - Headache [None]
  - Confusional state [None]
  - Gingival swelling [None]

NARRATIVE: CASE EVENT DATE: 20190524
